FAERS Safety Report 20683031 (Version 2)
Quarter: 2022Q2

REPORT INFORMATION
  Report Type: Spontaneous
  Country: PK (occurrence: PK)
  Receive Date: 20220407
  Receipt Date: 20220411
  Transmission Date: 20220721
  Serious: Yes (Other)
  Sender: FDA-Public Use
  Company Number: PK-BAYER-2022A042493

PATIENT
  Age: 44 Year
  Sex: Male

DRUGS (3)
  1. EYLEA [Suspect]
     Active Substance: AFLIBERCEPT
     Indication: Chorioretinopathy
     Dosage: 2 MG, ONCE - FIRST DOSE
     Dates: start: 20220122, end: 20220122
  2. EYLEA [Suspect]
     Active Substance: AFLIBERCEPT
     Dosage: 2 MG, ONCE - SECOND DOSE
     Dates: start: 20220219, end: 20220219
  3. EYLEA [Suspect]
     Active Substance: AFLIBERCEPT
     Dosage: 2 MG, ONCE - THIRD DOSE
     Dates: start: 20220321

REACTIONS (2)
  - Ocular hyperaemia [Recovering/Resolving]
  - Off label use [Unknown]

NARRATIVE: CASE EVENT DATE: 20220321
